FAERS Safety Report 8220414-1 (Version None)
Quarter: 2012Q1

REPORT INFORMATION
  Report Type: 
  Country: None (occurrence: None)
  Receive Date: 20120316
  Receipt Date: 20120307
  Transmission Date: 20120608
  Serious: Yes (Hospitalization)
  Sender: FDA-Public Use
  Company Number: ACO_28565_2011

PATIENT
  Age: 49 Year
  Sex: Female
  Weight: 56.7 kg

DRUGS (9)
  1. VALTREX [Concomitant]
  2. AMPYRA [Suspect]
     Indication: GAIT DISTURBANCE
     Dosage: 10 MG, Q 12 HRS, ORAL
     Route: 048
     Dates: start: 20111216
  3. CYMBALTA [Concomitant]
  4. BETHANECHOL CLORIDE [Concomitant]
  5. LAMICTAL [Concomitant]
  6. PROVIGIL [Concomitant]
  7. PREDNISONE TAB [Suspect]
     Indication: PRODUCT USED FOR UNKNOWN INDICATION
     Dosage: 20 MG, QD FOR 10 DAYS, ORAL
     Route: 048
     Dates: start: 20111230
  8. TYSABRI [Suspect]
     Indication: PRODUCT USED FOR UNKNOWN INDICATION
     Dosage: 300MG/15ML, MONTHLY, IV, INTRAVENOUS
     Route: 042
     Dates: start: 20111123
  9. RESTORIL [Suspect]
     Indication: INSOMNIA
     Dosage: 15 MG, QHS FOR 30 DAYS
     Dates: start: 20111228

REACTIONS (2)
  - NAUSEA [None]
  - PROGRESSIVE MULTIFOCAL LEUKOENCEPHALOPATHY [None]
